FAERS Safety Report 6842440-7 (Version None)
Quarter: 2010Q3

REPORT INFORMATION
  Report Type: 
  Country: None (occurrence: None)
  Receive Date: 20100714
  Receipt Date: 20070901
  Transmission Date: 20110219
  Serious: No
  Sender: FDA-Public Use
  Company Number: US-PFIZER INC-2007062582

PATIENT
  Sex: Female
  Weight: 50 kg

DRUGS (15)
  1. CHANTIX [Suspect]
     Indication: SMOKING CESSATION THERAPY
     Route: 048
     Dates: start: 20070713, end: 20070722
  2. CARDIOVASCULAR SYSTEM DRUGS [Concomitant]
     Indication: BLOOD PRESSURE ABNORMAL
  3. HERBAL NOS/MINERALS NOS [Concomitant]
  4. BENZONATATE [Concomitant]
  5. FACTIVE [Concomitant]
  6. UNIPHYL [Concomitant]
     Indication: EMPHYSEMA
  7. DIFLUCAN [Concomitant]
  8. ADVAIR DISKUS 100/50 [Concomitant]
  9. LEVOFLOXACIN [Concomitant]
  10. PREDNISONE TAB [Concomitant]
     Route: 048
  11. DYAZIDE [Concomitant]
  12. VERAPAMIL HYDROCHLORIDE [Concomitant]
  13. RANITIDINE HYDROCHLORIDE [Concomitant]
  14. COMBIVENT [Concomitant]
     Route: 055
  15. CALCIUM [Concomitant]

REACTIONS (6)
  - ABNORMAL DREAMS [None]
  - DECREASED APPETITE [None]
  - FEELING COLD [None]
  - NAUSEA [None]
  - SOMNOLENCE [None]
  - VOMITING [None]
